FAERS Safety Report 9369840 (Version 4)
Quarter: 2014Q3

REPORT INFORMATION
  Report Type: Spontaneous
  Country: ES (occurrence: ES)
  Receive Date: 20130626
  Receipt Date: 20140820
  Transmission Date: 20150326
  Serious: Yes (Hospitalization, Other)
  Sender: FDA-Public Use
  Company Number: ES-BRISTOL-MYERS SQUIBB COMPANY-19027945

PATIENT
  Age: 39 Year
  Sex: Female

DRUGS (1)
  1. SPRYCEL [Suspect]
     Active Substance: DASATINIB
     Indication: CHRONIC MYELOID LEUKAEMIA

REACTIONS (4)
  - Upper gastrointestinal haemorrhage [Unknown]
  - Chylothorax [Unknown]
  - Varices oesophageal [Unknown]
  - Portal hypertension [Unknown]

NARRATIVE: CASE EVENT DATE: 20130617
